FAERS Safety Report 4459568-1 (Version None)
Quarter: 2004Q3

REPORT INFORMATION
  Report Type: 
  Country: None (occurrence: None)
  Receive Date: 20040910
  Receipt Date: 20040602
  Transmission Date: 20050211
  Serious: No
  Sender: FDA-Public Use
  Company Number: 2004217667US

PATIENT
  Age: 59 Year
  Sex: Female

DRUGS (1)
  1. BEXTRA [Suspect]
     Indication: ARTHRITIS
     Dosage: 10 MG, QD, UNK
     Dates: start: 20031001

REACTIONS (2)
  - DRUG INEFFECTIVE [None]
  - SKIN DISCOLOURATION [None]
